FAERS Safety Report 24130944 (Version 1)
Quarter: 2024Q3

REPORT INFORMATION
  Report Type: Spontaneous
  Country: NL (occurrence: NL)
  Receive Date: 20240724
  Receipt Date: 20240724
  Transmission Date: 20241016
  Serious: Yes (Hospitalization, Other)
  Sender: CHEPLAPHARM
  Company Number: None

PATIENT
  Age: 53 Year
  Sex: Female
  Weight: 60 kg

DRUGS (4)
  1. OLANZAPINE [Suspect]
     Active Substance: OLANZAPINE
     Indication: Nausea
     Dosage: 1 X PER DAY 1 PIECE/MELTING TABLET VELOTAB ORODISP?DAILY DOSE: 10 MILLIGRAM
     Dates: start: 20240326, end: 20240327
  2. ASPIRIN [Concomitant]
     Active Substance: ASPIRIN
     Dosage: 80 MG 1DD
  3. BILASTINE [Concomitant]
     Active Substance: BILASTINE
     Dosage: 20 MG 1DD
  4. DULOXETINE [Concomitant]
     Active Substance: DULOXETINE

REACTIONS (4)
  - Speech disorder [Not Recovered/Not Resolved]
  - Confusional state [Unknown]
  - Fatigue [Unknown]
  - Gait disturbance [Unknown]
